FAERS Safety Report 9463606 (Version 1)
Quarter: 2013Q3

REPORT INFORMATION
  Report Type: Spontaneous
  Country: US (occurrence: None)
  Receive Date: 20130815
  Receipt Date: 20130815
  Transmission Date: 20140515
  Serious: No
  Sender: FDA-Public Use
  Company Number: None

PATIENT
  Age: 39 Year
  Sex: Female

DRUGS (1)
  1. LUPRON DEPOT [Suspect]
     Indication: ENDOMETRIOSIS
     Dosage: LUPRON DEPOT 3.75 MG ONCE PER MONTH INTRAMUSCULARLY
     Route: 030
     Dates: start: 20130710, end: 20130806

REACTIONS (1)
  - Adverse drug reaction [None]
